FAERS Safety Report 17071710 (Version 1)
Quarter: 2019Q4

REPORT INFORMATION
  Report Type: Spontaneous
  Country: GB (occurrence: GB)
  Receive Date: 20191125
  Receipt Date: 20191125
  Transmission Date: 20200122
  Serious: Yes (Death, Congenital Anomaly)
  Sender: FDA-Public Use
  Company Number: GB-TEVA-2008A-01123

PATIENT
  Sex: Male
  Weight: 2.9 kg

DRUGS (4)
  1. OLANZAPINE. [Suspect]
     Active Substance: OLANZAPINE
     Indication: MENTAL DISORDER
     Dosage: 15 MILLIGRAM DAILY;
     Route: 064
     Dates: start: 2003
  2. LACTULOSE. [Concomitant]
     Active Substance: LACTULOSE
     Indication: CONSTIPATION
     Dosage: 3.25 MILLIGRAM DAILY;
     Route: 064
     Dates: start: 200802, end: 200802
  3. VENLAFAXINE HYDROCHLORIDE (UNKNOWN) [Suspect]
     Active Substance: VENLAFAXINE HYDROCHLORIDE
     Indication: MENTAL DISORDER
     Dosage: 150 MILLIGRAM DAILY;
     Route: 064
     Dates: start: 2003
  4. CODEINE PHOSPHATE [Concomitant]
     Active Substance: CODEINE PHOSPHATE
     Indication: PAIN
     Dosage: 60 MILLIGRAM DAILY;
     Route: 064
     Dates: start: 200802, end: 200802

REACTIONS (4)
  - Pulmonary hypoplasia [Fatal]
  - Neonatal disorder [Fatal]
  - Diaphragmatic hernia [Fatal]
  - Premature baby [Fatal]
